FAERS Safety Report 22173102 (Version 1)
Quarter: 2023Q2

REPORT INFORMATION
  Report Type: Report from Study
  Country: US (occurrence: US)
  Receive Date: 20230404
  Receipt Date: 20230404
  Transmission Date: 20230722
  Serious: Yes (Other)
  Sender: FDA-Public Use
  Company Number: US-JNJFOC-20230366820

PATIENT

DRUGS (2)
  1. DARATUMUMAB [Suspect]
     Active Substance: DARATUMUMAB
     Indication: Prostate cancer
     Route: 065
  2. EDICOTINIB [Suspect]
     Active Substance: EDICOTINIB
     Indication: Prostate cancer
     Route: 065

REACTIONS (42)
  - Infusion related reaction [Unknown]
  - Adverse event [Unknown]
  - Urticaria [Unknown]
  - Off label use [Unknown]
  - White blood cell count decreased [Unknown]
  - Blood creatinine increased [Unknown]
  - Hyperglycaemia [Unknown]
  - Paraesthesia [Unknown]
  - Alanine aminotransferase increased [Unknown]
  - Blood chloride decreased [Unknown]
  - Disturbance in attention [Unknown]
  - Dyspepsia [Unknown]
  - Myalgia [Unknown]
  - Rash [Unknown]
  - Oropharyngeal pain [Unknown]
  - Abdominal pain [Unknown]
  - Alopecia [Unknown]
  - Vision blurred [Unknown]
  - Carbon dioxide decreased [Unknown]
  - Confusional state [Unknown]
  - Dysphagia [Unknown]
  - Dysuria [Unknown]
  - Ear pain [Unknown]
  - Influenza like illness [Unknown]
  - Hyponatraemia [Unknown]
  - Pruritus [Unknown]
  - Herpes zoster [Unknown]
  - Sinus pain [Unknown]
  - Tri-iodothyronine decreased [Unknown]
  - Tremor [Unknown]
  - Wheezing [Unknown]
  - Yellow skin [Unknown]
  - Pain [Unknown]
  - Cough [Unknown]
  - Headache [Unknown]
  - Fatigue [Unknown]
  - Nausea [Unknown]
  - Platelet count decreased [Unknown]
  - Rhinitis [Unknown]
  - Diarrhoea [Unknown]
  - Anaemia [Unknown]
  - Constipation [Unknown]
